FAERS Safety Report 26043049 (Version 1)
Quarter: 2025Q4

REPORT INFORMATION
  Report Type: Spontaneous
  Country: US (occurrence: US)
  Receive Date: 20251113
  Receipt Date: 20251113
  Transmission Date: 20260118
  Serious: No
  Sender: ANI
  Company Number: US-ANIPHARMA-2025-US-047598

PATIENT
  Sex: Male

DRUGS (13)
  1. CORTICOTROPIN [Suspect]
     Active Substance: CORTICOTROPIN
     Indication: Pemphigoid
     Dosage: 1 ML REDUCED TO 0.5 ML TWO TIMES PER WEEK ABOUT 17-SEP-2025
     Route: 058
  2. CYCLOPHOSPHAMIDE [Concomitant]
     Active Substance: CYCLOPHOSPHAMIDE
  3. XDEMVY [Concomitant]
     Active Substance: LOTILANER
  4. Amgevity [Concomitant]
     Dosage: 40 MG SQ WEEKLY
     Route: 058
  5. CEQUA [Concomitant]
     Active Substance: CYCLOSPORINE
  6. VALACYCLOVIR HYDROCHLORIDE [Concomitant]
     Active Substance: VALACYCLOVIR HYDROCHLORIDE
  7. TRUVADA [Concomitant]
     Active Substance: EMTRICITABINE\TENOFOVIR DISOPROXIL FUMARATE
  8. PROPRANOLOL HYDROCHLORIDE [Concomitant]
     Active Substance: PROPRANOLOL HYDROCHLORIDE
  9. PREDNISOLONE SODIUM PHOSPHATE [Concomitant]
     Active Substance: PREDNISOLONE SODIUM PHOSPHATE
  10. METHOTREXATE SODIUM LPF [Concomitant]
  11. MEDROL [Concomitant]
     Active Substance: METHYLPREDNISOLONE
  12. GABAPENTIN [Concomitant]
     Active Substance: GABAPENTIN
  13. FOLIC ACID [Concomitant]
     Active Substance: FOLIC ACID

REACTIONS (3)
  - Anger [Recovering/Resolving]
  - Irritability [Recovering/Resolving]
  - Product use in unapproved indication [Not Recovered/Not Resolved]
